FAERS Safety Report 4471809-3 (Version None)
Quarter: 2004Q4

REPORT INFORMATION
  Report Type: 
  Country: None (occurrence: None)
  Receive Date: 20041006
  Receipt Date: 20040923
  Transmission Date: 20050328
  Serious: Yes (Disabling)
  Sender: FDA-Public Use
  Company Number: 2003041194

PATIENT
  Sex: Female

DRUGS (1)
  1. LIPITOR [Suspect]
     Indication: BLOOD CHOLESTEROL

REACTIONS (9)
  - ABASIA [None]
  - DENTAL CARIES [None]
  - DENTAL EXAMINATION ABNORMAL [None]
  - ECONOMIC PROBLEM [None]
  - JOINT STIFFNESS [None]
  - MUSCLE INJURY [None]
  - MYALGIA [None]
  - PAIN IN EXTREMITY [None]
  - POCKET EROSION [None]
